FAERS Safety Report 9149889 (Version 2)
Quarter: 2013Q1

REPORT INFORMATION
  Report Type: Spontaneous
  Country: JP (occurrence: None)
  Receive Date: 20130131
  Receipt Date: 20130219
  Transmission Date: 20140127
  Serious: Yes (Other)
  Sender: FDA-Public Use
  Company Number: TCI2013A00370

PATIENT
  Age: 77 Year
  Sex: Female

DRUGS (5)
  1. TAKEPRON OD (LANSOPRAZOLE) [Suspect]
     Indication: GASTRIC ULCER HAEMORRHAGE
     Dosage: 30 MG (30 MG, 1IN 1D)
     Route: 048
     Dates: start: 20121203, end: 20130116
  2. TAKEPRON INJECTION 30MG (LANSOPRAZOLE) [Suspect]
     Indication: GASTRIC ULCER HAEMORRHAGE
     Dosage: 60 MG (30 MG, 2 IN 1 D)
     Route: 042
     Dates: start: 20121118, end: 20121202
  3. EXELON PATCH (RIVASTIGMINE) [Concomitant]
  4. CLARITH (CLARITHROMYCIN) [Concomitant]
  5. SAWACILLIN (AMOXICILLIN TRIHYDRATE) [Concomitant]

REACTIONS (3)
  - Granulocytopenia [None]
  - Idiopathic neutropenia [None]
  - Lymphocyte stimulation test positive [None]
